FAERS Safety Report 8136659-5 (Version None)
Quarter: 2012Q1

REPORT INFORMATION
  Report Type: 
  Country: None (occurrence: None)
  Receive Date: 20120214
  Receipt Date: 20120207
  Transmission Date: 20120608
  Serious: Yes (Other)
  Sender: FDA-Public Use
  Company Number: US-ROCHE-794002

PATIENT
  Sex: Male
  Weight: 113.5 kg

DRUGS (2)
  1. ACCUTANE [Suspect]
  2. ACCUTANE [Suspect]
     Indication: ACNE
     Route: 065
     Dates: start: 19971201, end: 19980228

REACTIONS (7)
  - COLITIS ULCERATIVE [None]
  - INTESTINAL OBSTRUCTION [None]
  - INFLAMMATORY BOWEL DISEASE [None]
  - MENTAL DISORDER [None]
  - IRRITABLE BOWEL SYNDROME [None]
  - INTESTINAL HAEMORRHAGE [None]
  - DEPRESSION [None]
